FAERS Safety Report 7159739-X (Version None)
Quarter: 2010Q4

REPORT INFORMATION
  Report Type: 
  Country: None (occurrence: None)
  Receive Date: 20101214
  Receipt Date: 20101020
  Transmission Date: 20110411
  Serious: No
  Sender: FDA-Public Use
  Company Number: US-ASTRAZENECA-2010SE49960

PATIENT
  Sex: Male

DRUGS (8)
  1. ROSUVASTATIN [Suspect]
     Route: 048
  2. NIASPAN [Suspect]
     Indication: HYPERLIPIDAEMIA
     Route: 065
  3. ACETYLSALICYLIC ACID [Concomitant]
  4. CLOPIDOGREL [Concomitant]
  5. ESCITALOPRAM OXALATE [Concomitant]
  6. DEXILANT [Concomitant]
  7. METOPROLOL [Concomitant]
  8. FISH OIL [Concomitant]

REACTIONS (2)
  - FLUSHING [None]
  - PAIN IN EXTREMITY [None]
